FAERS Safety Report 7387220-1 (Version None)
Quarter: 2011Q1

REPORT INFORMATION
  Report Type: 
  Country: None (occurrence: None)
  Receive Date: 20110331
  Receipt Date: 20110319
  Transmission Date: 20110831
  Serious: No
  Sender: FDA-Public Use
  Company Number: US-B.I. PHARMACEUTICALS,INC./RIDGEFIELD-2011-BP-08742BP

PATIENT
  Sex: Female

DRUGS (3)
  1. PRADAXA [Suspect]
     Indication: ATRIAL FIBRILLATION
     Dosage: 300 MG
     Route: 048
     Dates: start: 20110308
  2. LEVOXYLS [Concomitant]
     Indication: HYPOTHYROIDISM
  3. FLECAINIDE [Concomitant]
     Indication: ATRIAL FIBRILLATION

REACTIONS (5)
  - FATIGUE [None]
  - PARAESTHESIA [None]
  - NAUSEA [None]
  - HEADACHE [None]
  - FEELING ABNORMAL [None]
